FAERS Safety Report 7712472-5 (Version None)
Quarter: 2011Q3

REPORT INFORMATION
  Report Type: 
  Country: None (occurrence: None)
  Receive Date: 20110826
  Receipt Date: 20110826
  Transmission Date: 20111222
  Serious: Yes (Other)
  Sender: FDA-Public Use
  Company Number: None

PATIENT
  Sex: Female

DRUGS (1)
  1. TRIHEXYPHENIDYL HCL [Suspect]
     Indication: NECK PAIN
     Dosage: 5MG
     Route: 048
     Dates: start: 20110628, end: 20110705

REACTIONS (3)
  - RASH MACULO-PAPULAR [None]
  - OFF LABEL USE [None]
  - RASH ERYTHEMATOUS [None]
